FAERS Safety Report 17364285 (Version 1)
Quarter: 2020Q1

REPORT INFORMATION
  Report Type: Report from Study
  Country: US (occurrence: US)
  Receive Date: 20200204
  Receipt Date: 20200204
  Transmission Date: 20200409
  Serious: No
  Sender: FDA-Public Use
  Company Number: US-CELGENEUS-USA-20200109901

PATIENT

DRUGS (3)
  1. OTEZLA [Suspect]
     Active Substance: APREMILAST
     Indication: PSORIASIS
     Route: 048
  2. TREMFYA [Concomitant]
     Active Substance: GUSELKUMAB
     Indication: PSORIASIS
     Route: 065
  3. EUCRISA [Concomitant]
     Active Substance: CRISABOROLE
     Indication: PSORIASIS
     Route: 065

REACTIONS (2)
  - Therapeutic product effect incomplete [Unknown]
  - Skin discolouration [Unknown]
